FAERS Safety Report 19002976 (Version 2)
Quarter: 2021Q2

REPORT INFORMATION
  Report Type: Spontaneous
  Country: US (occurrence: US)
  Receive Date: 20210312
  Receipt Date: 20210428
  Transmission Date: 20210717
  Serious: No
  Sender: FDA-Public Use
  Company Number: US-ASTRAZENECA-2021A057537

PATIENT
  Age: 989 Month
  Sex: Female
  Weight: 104.3 kg

DRUGS (1)
  1. SYMBICORT [Suspect]
     Active Substance: BUDESONIDE\FORMOTEROL FUMARATE DIHYDRATE
     Indication: CHRONIC OBSTRUCTIVE PULMONARY DISEASE
     Dosage: 160/4.5 UG, 1 PUFF TWICE DAILY TWO TIMES A DAY
     Route: 055

REACTIONS (6)
  - Wrong technique in device usage process [Unknown]
  - Product use issue [Unknown]
  - Intentional device misuse [Unknown]
  - Device use issue [Unknown]
  - Nasopharyngitis [Unknown]
  - Device malfunction [Unknown]

NARRATIVE: CASE EVENT DATE: 202101
